FAERS Safety Report 13701982 (Version 1)
Quarter: 2017Q2

REPORT INFORMATION
  Report Type: Spontaneous
  Country: US (occurrence: US)
  Receive Date: 20170629
  Receipt Date: 20170629
  Transmission Date: 20170830
  Serious: No
  Sender: FDA-Public Use
  Company Number: US-JNJFOC-20160625607

PATIENT
  Age: 68 Year
  Sex: Female
  Weight: 52.16 kg

DRUGS (2)
  1. NIZORAL A-D [Suspect]
     Active Substance: KETOCONAZOLE
     Indication: PRURITUS
     Dosage: 1 %, AMOUNT USE: QUARTER SIZE
     Route: 061
     Dates: start: 20160613, end: 20160626
  2. NIZORAL A-D [Suspect]
     Active Substance: KETOCONAZOLE
     Indication: DANDRUFF
     Dosage: 1 %, AMOUNT USE: QUARTER SIZE
     Route: 061
     Dates: start: 20160613, end: 20160626

REACTIONS (1)
  - Pruritus [Recovering/Resolving]

NARRATIVE: CASE EVENT DATE: 20160613
